FAERS Safety Report 8359126-2 (Version None)
Quarter: 2012Q2

REPORT INFORMATION
  Report Type: 
  Country: None (occurrence: None)
  Receive Date: 20120515
  Receipt Date: 20120501
  Transmission Date: 20120825
  Serious: Yes (Death, Hospitalization)
  Sender: FDA-Public Use
  Company Number: US-RANBAXY-2012US-56208

PATIENT
  Age: 44 Year
  Sex: Female

DRUGS (6)
  1. SIMVASTATIN [Suspect]
     Indication: PRODUCT USED FOR UNKNOWN INDICATION
     Dosage: 20 MG/DAY
     Route: 048
  2. CYMBALTA [Suspect]
     Indication: DEPRESSION
     Dosage: 60 MG, QD
     Route: 065
  3. WARFARIN SODIUM [Suspect]
     Dosage: 3MG
     Route: 065
  4. WARFARIN SODIUM [Suspect]
     Indication: PRODUCT USED FOR UNKNOWN INDICATION
     Dosage: 1-6 MG/DAY
     Route: 065
  5. CYMBALTA [Suspect]
     Indication: NEURALGIA
  6. ACETAMINOPHEN [Suspect]
     Indication: PRODUCT USED FOR UNKNOWN INDICATION
     Dosage: 650MG UP TO FOUR TIMES A DAY AS REQUIRED
     Route: 048

REACTIONS (8)
  - HAEMATOCRIT DECREASED [None]
  - HAEMOGLOBIN DECREASED [None]
  - MEAN CELL HAEMOGLOBIN CONCENTRATION DECREASED [None]
  - MEAN CELL VOLUME DECREASED [None]
  - TRANSAMINASES INCREASED [None]
  - INTERNATIONAL NORMALISED RATIO INCREASED [None]
  - RETICULOCYTE COUNT INCREASED [None]
  - DRUG INTERACTION [None]
